FAERS Safety Report 4265053-2 (Version None)
Quarter: 2004Q1

REPORT INFORMATION
  Report Type: 
  Country: None (occurrence: None)
  Receive Date: 20040105
  Receipt Date: 20031218
  Transmission Date: 20041129
  Serious: Yes (Life-Threatening, Hospitalization)
  Sender: FDA-Public Use
  Company Number: STA-AE-03-MTX-198

PATIENT
  Age: 78 Year
  Sex: Female

DRUGS (3)
  1. RHEUMATREX [Suspect]
     Indication: RHEUMATOID ARTHRITIS
     Dosage: 6 MG 1 X PER 1 WK, ORAL
     Route: 048
     Dates: start: 20030913, end: 20030914
  2. IBUPROFEN [Concomitant]
  3. MUCOSTA (REBAMIPIDE) [Concomitant]

REACTIONS (1)
  - PULMONARY ALVEOLAR HAEMORRHAGE [None]
